FAERS Safety Report 19804204 (Version 2)
Quarter: 2022Q3

REPORT INFORMATION
  Report Type: Spontaneous
  Country: US (occurrence: None)
  Receive Date: 20210908
  Receipt Date: 20220907
  Transmission Date: 20221027
  Serious: No
  Sender: FDA-Public Use
  Company Number: US-FARMAPROD-202107-1106

PATIENT
  Sex: Female

DRUGS (7)
  1. OXERVATE [Suspect]
     Active Substance: CENEGERMIN-BKBJ
     Indication: Neurotrophic keratopathy
     Route: 047
     Dates: start: 20210629
  2. CALCIUM CITRATE [Concomitant]
     Active Substance: CALCIUM CITRATE
  3. OMEPRAZOLE [Concomitant]
     Active Substance: OMEPRAZOLE
  4. TYLENOL [Concomitant]
     Active Substance: ACETAMINOPHEN
  5. VITAMINS [Concomitant]
     Active Substance: VITAMINS
  6. URSODIOL [Concomitant]
     Active Substance: URSODIOL
  7. GENTEAL MILD [Concomitant]
     Active Substance: HYPROMELLOSE 2910 (4000 MPA.S)
     Dosage: 0.1%-0.3% DROPERETTE

REACTIONS (4)
  - Eye pain [Not Recovered/Not Resolved]
  - Ocular discomfort [Unknown]
  - Foreign body sensation in eyes [Unknown]
  - Photophobia [Unknown]
